FAERS Safety Report 9531173 (Version 5)
Quarter: 2014Q1

REPORT INFORMATION
  Report Type: Spontaneous
  Country: CH (occurrence: CH)
  Receive Date: 20130918
  Receipt Date: 20140228
  Transmission Date: 20141002
  Serious: Yes (Hospitalization)
  Sender: FDA-Public Use
  Company Number: PHHY2013CH102793

PATIENT
  Sex: Female

DRUGS (2)
  1. GILENYA [Suspect]
     Route: 048
     Dates: start: 2012, end: 201302
  2. GILENYA [Suspect]
     Route: 048
     Dates: start: 201305

REACTIONS (10)
  - Status epilepticus [Recovering/Resolving]
  - Multiple sclerosis relapse [Recovered/Resolved with Sequelae]
  - Central nervous system lesion [Unknown]
  - Cognitive disorder [Unknown]
  - Fatigue [Recovering/Resolving]
  - Disorientation [Recovering/Resolving]
  - Abnormal behaviour [Recovering/Resolving]
  - Dysphagia [Recovering/Resolving]
  - Movement disorder [Recovering/Resolving]
  - Dystonia [Recovering/Resolving]
